FAERS Safety Report 21334888 (Version 2)
Quarter: 2022Q4

REPORT INFORMATION
  Report Type: Spontaneous
  Country: US (occurrence: US)
  Receive Date: 20220914
  Receipt Date: 20221012
  Transmission Date: 20230112
  Serious: Yes (Hospitalization)
  Sender: FDA-Public Use
  Company Number: US-009507513-2209USA003788

PATIENT
  Sex: Male

DRUGS (18)
  1. CUBICIN [Suspect]
     Active Substance: DAPTOMYCIN
     Indication: Staphylococcal bacteraemia
     Dosage: 8.9MG/KG EVERY 24 HOURS
     Route: 042
     Dates: start: 20220908
  2. CEFTAROLINE [Concomitant]
     Active Substance: CEFTAROLINE
  3. ACETAMINOPHEN [Concomitant]
     Active Substance: ACETAMINOPHEN
  4. ASCORBIC ACID [Concomitant]
     Active Substance: ASCORBIC ACID
  5. BISACODYL [Concomitant]
     Active Substance: BISACODYL
  6. FERROUS SULFATE [Concomitant]
     Active Substance: FERROUS SULFATE
  7. GABAPENTIN [Concomitant]
     Active Substance: GABAPENTIN
  8. GUAIFENESIN [Concomitant]
     Active Substance: GUAIFENESIN
  9. LEVOTHYROXINE [Concomitant]
     Active Substance: LEVOTHYROXINE
  10. LIDOCAINE [Concomitant]
     Active Substance: LIDOCAINE
     Dosage: FORMULATION: PATCH
  11. METOPROLOL [Concomitant]
     Active Substance: METOPROLOL
  12. NYSTATIN [Concomitant]
     Active Substance: NYSTATIN
  13. SULFASALAZINE [Concomitant]
     Active Substance: SULFASALAZINE
  14. THIAMINE [Concomitant]
     Active Substance: THIAMINE
  15. CALCIUM CARBONATE [Concomitant]
     Active Substance: CALCIUM CARBONATE
  16. MENTHOL [Concomitant]
     Active Substance: MENTHOL
  17. ONDANSETRON [Concomitant]
     Active Substance: ONDANSETRON
  18. OXYCODONE [Concomitant]
     Active Substance: OXYCODONE

REACTIONS (7)
  - Blood albumin abnormal [Not Recovered/Not Resolved]
  - Blood sodium abnormal [Not Recovered/Not Resolved]
  - Haemoglobin abnormal [Not Recovered/Not Resolved]
  - Aspartate aminotransferase increased [Not Recovered/Not Resolved]
  - Hepatic enzyme increased [Not Recovered/Not Resolved]
  - Blood creatine phosphokinase increased [Not Recovered/Not Resolved]
  - Incorrect dose administered [Unknown]

NARRATIVE: CASE EVENT DATE: 20220901
